FAERS Safety Report 7135464-6 (Version None)
Quarter: 2010Q4

REPORT INFORMATION
  Report Type: 
  Country: None (occurrence: None)
  Receive Date: 20101203
  Receipt Date: 20101130
  Transmission Date: 20110411
  Serious: Yes (Other)
  Sender: FDA-Public Use
  Company Number: CHPA2010US18017

PATIENT
  Age: 68 Year
  Sex: Female

DRUGS (3)
  1. PREVACID 24 HR [Suspect]
     Indication: GASTROOESOPHAGEAL REFLUX DISEASE
     Dosage: 30 MG, QD
     Route: 048
  2. CORTISONE [Concomitant]
     Indication: ADDISON'S DISEASE
     Dosage: UNK
  3. THYROID THERAPY [Concomitant]

REACTIONS (6)
  - DIARRHOEA [None]
  - DRUG DEPENDENCE [None]
  - DYSPEPSIA [None]
  - INTENTIONAL DRUG MISUSE [None]
  - OFF LABEL USE [None]
  - OVERDOSE [None]
